FAERS Safety Report 9234439 (Version 1)
Quarter: 2013Q2

REPORT INFORMATION
  Report Type: Spontaneous
  Country: US (occurrence: US)
  Receive Date: 20130416
  Receipt Date: 20130416
  Transmission Date: 20140414
  Serious: No
  Sender: FDA-Public Use
  Company Number: US-ASTRAZENECA-2013SE18420

PATIENT
  Age: 66 Year
  Sex: Female

DRUGS (3)
  1. METOPROLOL TARTRATE [Suspect]
     Route: 048
     Dates: start: 20130306
  2. BRILINTA [Suspect]
     Indication: PERCUTANEOUS CORONARY INTERVENTION
     Route: 048
     Dates: start: 20130306, end: 20130315
  3. AMBIEN [Suspect]
     Dates: start: 20130306

REACTIONS (1)
  - Rash [Unknown]
